FAERS Safety Report 9182174 (Version 3)
Quarter: 2013Q3

REPORT INFORMATION
  Report Type: Report from Study
  Country: BR (occurrence: BR)
  Receive Date: 20121030
  Receipt Date: 20130822
  Transmission Date: 20140515
  Serious: Yes (Other)
  Sender: FDA-Public Use
  Company Number: PHHY2012BR096533

PATIENT
  Sex: Male

DRUGS (5)
  1. DIOVAN [Suspect]
     Indication: BLOOD PRESSURE ABNORMAL
     Dosage: UNK UKN, UNK
  2. DIOVAN AMLO FIX [Suspect]
     Indication: HYPERTENSION
     Dosage: 1 DF, (160MG VALS/5MG AMLO) UKN
     Route: 048
  3. DIOVAN AMLO FIX [Suspect]
     Dosage: 1 DF, (320MG VALS/5MG AMLO) IN THE MORNING
     Route: 048
  4. AAS [Concomitant]
     Indication: CARDIOVASCULAR DISORDER
     Dosage: 2 DF (100 MG), AT LUNCH
     Route: 048
     Dates: end: 20121130
  5. FLUTAMIDE [Concomitant]
     Indication: PROSTATE CANCER
     Dosage: 3 DF (250 MG), A DAY
     Route: 048

REACTIONS (4)
  - Diabetes mellitus [Recovering/Resolving]
  - Anxiety [Recovered/Resolved]
  - Tension [Recovered/Resolved]
  - Blood pressure inadequately controlled [Recovered/Resolved]
